FAERS Safety Report 15093640 (Version 1)
Quarter: 2018Q2

REPORT INFORMATION
  Report Type: Spontaneous
  Country: US (occurrence: US)
  Receive Date: 20180629
  Receipt Date: 20180629
  Transmission Date: 20180711
  Serious: No
  Sender: FDA-Public Use
  Company Number: US-009507513-1806USA005101

PATIENT
  Age: 42 Year
  Sex: Female
  Weight: 104.31 kg

DRUGS (2)
  1. NEXPLANON [Suspect]
     Active Substance: ETONOGESTREL
     Dosage: 1 ROD, UNK
     Route: 059
     Dates: start: 2015, end: 20180606
  2. NEXPLANON [Suspect]
     Active Substance: ETONOGESTREL
     Dosage: UNK
     Route: 059
     Dates: start: 201806

REACTIONS (5)
  - Device expulsion [Unknown]
  - Complication associated with device [Unknown]
  - Complication of device insertion [Unknown]
  - Product quality issue [Unknown]
  - Weight increased [Unknown]

NARRATIVE: CASE EVENT DATE: 20180606
